FAERS Safety Report 10337756 (Version 2)
Quarter: 2014Q3

REPORT INFORMATION
  Report Type: Spontaneous
  Country: US (occurrence: US)
  Receive Date: 20140724
  Receipt Date: 20140724
  Transmission Date: 20150326
  Serious: No
  Sender: FDA-Public Use
  Company Number: US-UNITED THERAPEUTICS-UTC-047440

PATIENT
  Sex: Male

DRUGS (2)
  1. REMODULIN [Suspect]
     Active Substance: TREPROSTINIL
     Dosage: 0.047 UG/KG/MIN
     Route: 058
     Dates: start: 20130203
  2. LETAIRIS [Concomitant]
     Active Substance: AMBRISENTAN

REACTIONS (5)
  - Swollen tongue [Unknown]
  - Infusion site pustule [Unknown]
  - Infusion site pain [Unknown]
  - Lip swelling [Unknown]
  - Infusion site haemorrhage [Unknown]
